FAERS Safety Report 20035524 (Version 2)
Quarter: 2021Q4

REPORT INFORMATION
  Report Type: Report from Study
  Country: CA (occurrence: CA)
  Receive Date: 20211104
  Receipt Date: 20211223
  Transmission Date: 20220303
  Serious: Yes (Hospitalization, Other)
  Sender: FDA-Public Use
  Company Number: CA-KYOWAKIRIN-2021BKK018444

PATIENT

DRUGS (7)
  1. CRYSVITA [Suspect]
     Active Substance: BUROSUMAB-TWZA
     Indication: Hereditary hypophosphataemic rickets
     Dosage: 45 MG, Q 2 WEEKS
     Route: 058
     Dates: start: 20210630
  2. CRYSVITA [Suspect]
     Active Substance: BUROSUMAB-TWZA
     Dosage: 90 MG, Q 4 WEEKS
     Route: 058
     Dates: start: 20210602, end: 20210602
  3. CRYSVITA [Suspect]
     Active Substance: BUROSUMAB-TWZA
     Dosage: 80 MG, Q 4 WEEKS
     Route: 058
     Dates: start: 20200923, end: 20210505
  4. CRYSVITA [Suspect]
     Active Substance: BUROSUMAB-TWZA
     Dosage: 70 MG, Q 4 WEEKS
     Route: 058
     Dates: start: 20200115, end: 20200826
  5. VITAMIN D NOS [Concomitant]
     Active Substance: VITAMIN D NOS
     Indication: Product used for unknown indication
     Dosage: 3000 IU, QD
     Route: 048
  6. PERINDOPRIL [Concomitant]
     Active Substance: PERINDOPRIL
     Indication: Product used for unknown indication
     Dosage: 8 MG, QD
     Route: 048
  7. NORETHINDRONE [Concomitant]
     Active Substance: NORETHINDRONE
     Indication: Contraception
     Dosage: ONE PILL
     Route: 065

REACTIONS (5)
  - Femoroacetabular impingement [Unknown]
  - Fracture [Unknown]
  - Kyphosis [Unknown]
  - Arthralgia [Unknown]
  - Spinal pain [Unknown]
